FAERS Safety Report 6275064-3 (Version None)
Quarter: 2009Q3

REPORT INFORMATION
  Report Type: 
  Country: None (occurrence: None)
  Receive Date: 20090721
  Receipt Date: 20090710
  Transmission Date: 20100115
  Serious: Yes (Hospitalization)
  Sender: FDA-Public Use
  Company Number: US-ROCHE-596301

PATIENT
  Sex: Male
  Weight: 68 kg

DRUGS (9)
  1. MYCOPHENOLATE MOFETIL [Suspect]
     Indication: KIDNEY TRANSPLANT REJECTION
     Route: 048
     Dates: start: 20080825
  2. CP-690550 [Suspect]
     Indication: KIDNEY TRANSPLANT REJECTION
     Route: 048
     Dates: start: 20080825
  3. PREDNISONE TAB [Suspect]
     Indication: KIDNEY TRANSPLANT REJECTION
     Route: 048
     Dates: start: 20080825
  4. FAMOTIDINE [Concomitant]
     Dates: start: 20080826
  5. NYSTATIN [Concomitant]
     Dates: start: 20080826
  6. OLMESARTAN MEDOXOMIL [Concomitant]
     Dosage: DRUG NAME REPORTED AS OLMESARTAN (WAS NOT FOUND ONTO ADVENT)
     Dates: start: 20080916
  7. VALACYCLOVIR HCL [Concomitant]
     Dates: start: 20080826
  8. CLOTRIMAZOLE [Concomitant]
     Dates: start: 20080826
  9. SERTRALINE [Concomitant]
     Dates: start: 20080909

REACTIONS (1)
  - TRANSPLANT REJECTION [None]
